FAERS Safety Report 24064902 (Version 6)
Quarter: 2024Q4

REPORT INFORMATION
  Report Type: Spontaneous
  Country: CA (occurrence: CA)
  Receive Date: 20240709
  Receipt Date: 20241218
  Transmission Date: 20250115
  Serious: Yes (Other)
  Sender: CELLTRION
  Company Number: CA-PFIZER INC-202400101868

PATIENT

DRUGS (10)
  1. INFLECTRA [Suspect]
     Active Substance: INFLIXIMAB-DYYB
     Indication: Ankylosing spondylitis
     Dosage: WEEK 0, 2, 6 AND THEN EVERY 6 WEEKS
     Route: 042
     Dates: start: 20230213, end: 20230403
  2. INFLECTRA [Suspect]
     Active Substance: INFLIXIMAB-DYYB
     Dosage: EVERY 6 WEEKS
     Route: 042
     Dates: start: 20230626, end: 20231109
  3. INFLECTRA [Suspect]
     Active Substance: INFLIXIMAB-DYYB
     Dosage: EVERY 4 WEEKS
     Route: 042
     Dates: start: 20231221
  4. INFLECTRA [Suspect]
     Active Substance: INFLIXIMAB-DYYB
     Dosage: EVERY 4 WEEKS
     Route: 042
     Dates: start: 20240503
  5. INFLECTRA [Suspect]
     Active Substance: INFLIXIMAB-DYYB
     Dosage: EVERY 4 WEEKS
     Route: 042
     Dates: start: 20240531
  6. INFLECTRA [Suspect]
     Active Substance: INFLIXIMAB-DYYB
     Dosage: AFTER 4 WEEKS
     Route: 042
     Dates: start: 20240628
  7. INFLECTRA [Suspect]
     Active Substance: INFLIXIMAB-DYYB
     Dosage: EVERY 4 WEEKS
     Route: 042
     Dates: start: 20240726
  8. INFLECTRA [Suspect]
     Active Substance: INFLIXIMAB-DYYB
     Dosage: AFTER 4 WEEKS (EVERY 4 WEEKS)
     Route: 042
     Dates: start: 20240823
  9. INFLECTRA [Suspect]
     Active Substance: INFLIXIMAB-DYYB
     Dosage: EVERY 4 WEEKS
     Route: 042
     Dates: start: 20240920
  10. INFLECTRA [Suspect]
     Active Substance: INFLIXIMAB-DYYB
     Dosage: AFTER 7 WEEKS (EVERY 4 WEEKS)
     Route: 042
     Dates: start: 20241108, end: 20241108

REACTIONS (7)
  - Weight increased [Recovered/Resolved]
  - Drug ineffective [Unknown]
  - Therapeutic product effect incomplete [Unknown]
  - Condition aggravated [Not Recovered/Not Resolved]
  - Headache [Recovering/Resolving]
  - Off label use [Unknown]
  - Intentional dose omission [Unknown]

NARRATIVE: CASE EVENT DATE: 20240503
